FAERS Safety Report 7371074-3 (Version None)
Quarter: 2011Q1

REPORT INFORMATION
  Report Type: 
  Country: None (occurrence: None)
  Receive Date: 20110324
  Receipt Date: 20110315
  Transmission Date: 20110831
  Serious: Yes (Other)
  Sender: FDA-Public Use
  Company Number: PHHY2011FR22020

PATIENT
  Sex: Male

DRUGS (6)
  1. IRBESARTAN [Concomitant]
     Indication: HYPERTENSION
     Dosage: UNK
     Dates: start: 20090402
  2. FUROSEMIDE [Concomitant]
     Indication: HYPERTENSION
     Dosage: UNK
     Dates: start: 20090402
  3. SINTROM [Suspect]
     Dosage: UNK
     Route: 048
     Dates: start: 20090402
  4. AMIODARONE HCL [Concomitant]
     Indication: ARRHYTHMIA
     Dosage: UNK
     Dates: start: 20090402
  5. TEMERIT [Concomitant]
     Indication: HYPERTENSION
     Dosage: UNK
     Dates: start: 20090402
  6. VOLTAREN [Interacting]
     Indication: BACK PAIN
     Dosage: UNK
     Dates: start: 20100310, end: 20101228

REACTIONS (2)
  - DRUG INTERACTION [None]
  - INTERNATIONAL NORMALISED RATIO INCREASED [None]
